FAERS Safety Report 6789030-2 (Version None)
Quarter: 2010Q2

REPORT INFORMATION
  Report Type: 
  Country: None (occurrence: None)
  Receive Date: 20100623
  Receipt Date: 20080811
  Transmission Date: 20101027
  Serious: No
  Sender: FDA-Public Use
  Company Number: US-PFIZER INC-2008051012

PATIENT
  Sex: Male
  Weight: 34.93 kg

DRUGS (1)
  1. GEODON [Suspect]
     Indication: AFFECTIVE DISORDER
     Dates: start: 20080501, end: 20080617

REACTIONS (1)
  - SPONTANEOUS PENILE ERECTION [None]
